FAERS Safety Report 13843993 (Version 2)
Quarter: 2017Q3

REPORT INFORMATION
  Report Type: Spontaneous
  Country: US (occurrence: US)
  Receive Date: 20170808
  Receipt Date: 20170912
  Transmission Date: 20171127
  Serious: Yes (Hospitalization, Disabling, Other)
  Sender: FDA-Public Use
  Company Number: US-009507513-1111USA02190

PATIENT
  Sex: Female
  Weight: 60.77 kg

DRUGS (7)
  1. FOSAMAX [Suspect]
     Active Substance: ALENDRONATE SODIUM
     Indication: OSTEOPENIA
  2. BONIVA [Suspect]
     Active Substance: IBANDRONATE SODIUM
     Indication: OSTEOPETROSIS
  3. ACTONEL [Suspect]
     Active Substance: RISEDRONATE SODIUM
     Indication: OSTEOPETROSIS
     Dosage: UNK, UNKNOWN
     Route: 048
  4. BONIVA [Suspect]
     Active Substance: IBANDRONATE SODIUM
     Indication: OSTEOPOROSIS PROPHYLAXIS
  5. FOSAMAX [Suspect]
     Active Substance: ALENDRONATE SODIUM
     Indication: OSTEOPETROSIS
     Dosage: UNK UNK, UNKNOWN
     Route: 048
     Dates: start: 1995, end: 2005
  6. BONIVA [Suspect]
     Active Substance: IBANDRONATE SODIUM
     Indication: OSTEOPENIA
     Dosage: 150 MG, QM
     Route: 048
     Dates: start: 2005, end: 2010
  7. FOSAMAX [Suspect]
     Active Substance: ALENDRONATE SODIUM
     Indication: OSTEOPOROSIS PROPHYLAXIS

REACTIONS (35)
  - Hip arthroplasty [Unknown]
  - Product use in unapproved indication [Unknown]
  - Gastrooesophageal reflux disease [Unknown]
  - Arthralgia [Unknown]
  - Stress fracture [Unknown]
  - Spinal fusion surgery [Unknown]
  - Joint dislocation [Unknown]
  - Spinal claudication [Unknown]
  - Bone infarction [Unknown]
  - Femur fracture [Not Recovered/Not Resolved]
  - Peripheral vascular disorder [Unknown]
  - Arthralgia [Unknown]
  - Shoulder arthroplasty [Unknown]
  - Spinal laminectomy [Unknown]
  - Hypothyroidism [Unknown]
  - Tooth extraction [Unknown]
  - Hypertension [Unknown]
  - Back pain [Unknown]
  - Femur fracture [Recovered/Resolved]
  - Femur fracture [Unknown]
  - Foot operation [Unknown]
  - Anaemia [Unknown]
  - Gastritis [Unknown]
  - Angiopathy [Unknown]
  - Spinal column stenosis [Unknown]
  - Hyperlipidaemia [Unknown]
  - Fracture nonunion [Unknown]
  - Knee arthroplasty [Unknown]
  - Transfusion [Unknown]
  - Transfusion [Unknown]
  - Low turnover osteopathy [Not Recovered/Not Resolved]
  - Multiple fractures [Not Recovered/Not Resolved]
  - Bone lesion [Unknown]
  - Fracture nonunion [Unknown]
  - Diverticulum [Unknown]

NARRATIVE: CASE EVENT DATE: 1996
